FAERS Safety Report 13529436 (Version 1)
Quarter: 2017Q2

REPORT INFORMATION
  Report Type: Spontaneous
  Country: US (occurrence: US)
  Receive Date: 20170509
  Receipt Date: 20170509
  Transmission Date: 20170830
  Serious: Yes (Death, Other)
  Sender: FDA-Public Use
  Company Number: US-ROCHE-GNE286234

PATIENT
  Age: 64 Year
  Sex: Male
  Weight: 78.32 kg

DRUGS (1)
  1. XOLAIR [Suspect]
     Active Substance: OMALIZUMAB
     Indication: PRODUCT USED FOR UNKNOWN INDICATION
     Dosage: 375 MG, Q2W
     Route: 058
     Dates: start: 20060426

REACTIONS (3)
  - Cytopenia [None]
  - Prostate cancer metastatic [None]
  - Prostate cancer [Fatal]

NARRATIVE: CASE EVENT DATE: 200706
